FAERS Safety Report 21953045 (Version 2)
Quarter: 2023Q2

REPORT INFORMATION
  Report Type: Report from Study
  Country: US (occurrence: US)
  Receive Date: 20230204
  Receipt Date: 20230617
  Transmission Date: 20230722
  Serious: No
  Sender: FDA-Public Use
  Company Number: US-002147023-NVSC2023US020728

PATIENT
  Sex: Female

DRUGS (1)
  1. KESIMPTA [Suspect]
     Active Substance: OFATUMUMAB
     Indication: Multiple sclerosis
     Dosage: 20MG, 0.4 ML, QW, PATIENT HAS BEEN TAKING LOADING DOSE WEEKLY. WOULD BE GOING TO ONCE MONTHLY IF CON
     Route: 058
     Dates: start: 20230106

REACTIONS (1)
  - Drug ineffective [Unknown]
